FAERS Safety Report 17655423 (Version 2)
Quarter: 2020Q2

REPORT INFORMATION
  Report Type: Spontaneous
  Country: US (occurrence: US)
  Receive Date: 20200410
  Receipt Date: 20200417
  Transmission Date: 20200713
  Serious: Yes (Other)
  Sender: FDA-Public Use
  Company Number: US-TORRENT-00010149

PATIENT
  Age: 63 Year
  Sex: Male

DRUGS (2)
  1. ASPIRIN. [Concomitant]
     Active Substance: ASPIRIN
     Indication: VASCULAR GRAFT OCCLUSION
     Dosage: UNKNOWN
     Dates: start: 20190509
  2. CLOPIDOGREL [Suspect]
     Active Substance: CLOPIDOGREL BISULFATE
     Indication: VASCULAR GRAFT OCCLUSION
     Dosage: UNKNOWN
     Dates: start: 20190509, end: 20190711

REACTIONS (2)
  - Petechiae [Unknown]
  - Immune thrombocytopenia [Recovering/Resolving]

NARRATIVE: CASE EVENT DATE: 20190710
